FAERS Safety Report 16364862 (Version 3)
Quarter: 2019Q2

REPORT INFORMATION
  Report Type: Spontaneous
  Country: AU (occurrence: AU)
  Receive Date: 20190529
  Receipt Date: 20190603
  Transmission Date: 20190711
  Serious: Yes (Other)
  Sender: FDA-Public Use
  Company Number: AU-009507513-1905AUS012432

PATIENT
  Age: 56 Year
  Sex: Female

DRUGS (1)
  1. FOSAMAX PLUS D-CAL [Suspect]
     Active Substance: ALENDRONATE SODIUM\CALCIUM CARBONATE\CHOLECALCIFEROL

REACTIONS (2)
  - Pain [Recovered/Resolved]
  - Immobile [Unknown]

NARRATIVE: CASE EVENT DATE: 2014
